FAERS Safety Report 19731219 (Version 2)
Quarter: 2021Q4

REPORT INFORMATION
  Report Type: Spontaneous
  Country: MY (occurrence: MY)
  Receive Date: 20210821
  Receipt Date: 20211011
  Transmission Date: 20220303
  Serious: Yes (Other)
  Sender: FDA-Public Use
  Company Number: NVSC2021MY184440

PATIENT
  Age: 73 Year
  Sex: Male

DRUGS (2)
  1. BROLUCIZUMAB [Suspect]
     Active Substance: BROLUCIZUMAB
     Indication: Polypoidal choroidal vasculopathy
     Dosage: UNK
     Route: 031
     Dates: start: 20210604
  2. BROLUCIZUMAB [Suspect]
     Active Substance: BROLUCIZUMAB
     Dosage: UNK (LEFT EYE)
     Route: 031
     Dates: start: 20210730

REACTIONS (7)
  - Photophobia [Unknown]
  - Uveitis [Unknown]
  - Vitreous floaters [Unknown]
  - Vision blurred [Unknown]
  - Cystoid macular oedema [Unknown]
  - Retinal vasculitis [Unknown]
  - Vitreous opacities [Unknown]

NARRATIVE: CASE EVENT DATE: 20210806
